FAERS Safety Report 5045237-6 (Version None)
Quarter: 2006Q3

REPORT INFORMATION
  Report Type: 
  Country: None (occurrence: None)
  Receive Date: 20060705
  Receipt Date: 20060621
  Transmission Date: 20061208
  Serious: Yes (Death, Hospitalization, Other)
  Sender: FDA-Public Use
  Company Number: CLOF-10255

PATIENT
  Age: 76 Year
  Sex: Male

DRUGS (14)
  1. CLOLAR [Suspect]
     Indication: ACUTE MYELOID LEUKAEMIA
     Dosage: 61.5 MG QD X 5 IV
     Route: 042
     Dates: start: 20050526, end: 20050530
  2. CLOLAR [Suspect]
     Indication: MYELODYSPLASTIC SYNDROME
     Dosage: 61.5 MG QD X 5 IV
     Route: 042
     Dates: start: 20050526, end: 20050530
  3. CYTARABINE [Suspect]
     Indication: ACUTE MYELOID LEUKAEMIA
     Dosage: 41 MG QD SC
     Route: 058
     Dates: start: 20050526, end: 20050608
  4. CYTARABINE [Suspect]
     Indication: MYELODYSPLASTIC SYNDROME
     Dosage: 41 MG QD SC
     Route: 058
     Dates: start: 20050526, end: 20050608
  5. AUGMENTIN '125' [Concomitant]
  6. AMBISOME [Concomitant]
  7. VALTREX [Concomitant]
  8. ARICEPT [Concomitant]
  9. VERAPAMIL [Concomitant]
  10. HYDROCHLOROTHIAZIDE [Concomitant]
  11. CLONIDINE [Concomitant]
  12. LISINOPRIL [Concomitant]
  13. K-DUR 10 [Concomitant]
  14. PREVACID [Concomitant]

REACTIONS (12)
  - CENTRAL LINE INFECTION [None]
  - CEREBRAL ISCHAEMIA [None]
  - CONFUSIONAL STATE [None]
  - DEMENTIA [None]
  - HAEMODIALYSIS [None]
  - HYPOTENSION [None]
  - LETHARGY [None]
  - LUNG INFILTRATION [None]
  - MENTAL STATUS CHANGES [None]
  - RENAL FAILURE [None]
  - RESPIRATORY FAILURE [None]
  - SEPTIC SHOCK [None]
